FAERS Safety Report 9670467 (Version 1)
Quarter: 2013Q4

REPORT INFORMATION
  Report Type: Spontaneous
  Country: US (occurrence: FR)
  Receive Date: 20131106
  Receipt Date: 20131106
  Transmission Date: 20140711
  Serious: Yes (Hospitalization)
  Sender: FDA-Public Use
  Company Number: 2013SP007642

PATIENT
  Age: 64 Year
  Sex: Female

DRUGS (15)
  1. VANCOMYCIN [Suspect]
     Indication: DEVICE RELATED INFECTION
     Route: 042
     Dates: start: 20130801, end: 20130812
  2. VANCOMYCIN [Suspect]
     Indication: DEVICE RELATED INFECTION
     Route: 042
     Dates: start: 20130814, end: 20130826
  3. TAZOCILLINE [Suspect]
     Indication: DEVICE RELATED INFECTION
     Route: 042
     Dates: start: 20130801, end: 20130904
  4. ZYVOXID [Suspect]
     Indication: DEVICE RELATED INFECTION
     Route: 048
     Dates: start: 20130812, end: 20130814
  5. CUBICIN [Suspect]
     Indication: DEVICE RELATED INFECTION
     Route: 042
     Dates: start: 20130826, end: 20130904
  6. INEXIUM /01479303/ [Suspect]
     Indication: PRODUCT USED FOR UNKNOWN INDICATION
     Route: 048
     Dates: start: 20130801
  7. MORPHINE [Suspect]
     Indication: PRODUCT USED FOR UNKNOWN INDICATION
     Route: 058
     Dates: start: 20130801, end: 20130805
  8. ACUPAN [Suspect]
     Indication: PRODUCT USED FOR UNKNOWN INDICATION
     Route: 042
     Dates: start: 20130801
  9. ACUPAN [Suspect]
     Indication: PRODUCT USED FOR UNKNOWN INDICATION
     Route: 042
     Dates: start: 20130801
  10. CONTRAMAL [Suspect]
     Indication: PRODUCT USED FOR UNKNOWN INDICATION
     Route: 048
     Dates: start: 20130801
  11. SIFROL [Concomitant]
     Indication: RESTLESS LEGS SYNDROME
  12. PERFALGAN [Concomitant]
     Dates: start: 20130801, end: 20130804
  13. NICOPATCH [Concomitant]
     Dates: start: 20130801
  14. PARACETAMOL [Concomitant]
     Route: 042
     Dates: start: 20130801
  15. LOVENOX [Concomitant]
     Route: 058
     Dates: start: 20130801

REACTIONS (7)
  - Liver injury [Recovering/Resolving]
  - Eosinophilia [Recovering/Resolving]
  - Rash [Recovered/Resolved]
  - Rash [Not Recovered/Not Resolved]
  - Pyrexia [Unknown]
  - Face oedema [Unknown]
  - Nausea [Unknown]
